FAERS Safety Report 8389918-5 (Version None)
Quarter: 2012Q2

REPORT INFORMATION
  Report Type: 
  Country: None (occurrence: None)
  Receive Date: 20120522
  Receipt Date: 20120514
  Transmission Date: 20120825
  Serious: Yes (Hospitalization)
  Sender: FDA-Public Use
  Company Number: 2011SP007474

PATIENT
  Age: 46 Year
  Sex: Male

DRUGS (6)
  1. RIFAXIMIN [Concomitant]
  2. ATENOLOL [Concomitant]
  3. NEXIUM [Concomitant]
  4. REBETOL [Suspect]
     Indication: HEPATITIS C
     Dosage: 1200 MG; QD; PO
     Route: 048
     Dates: start: 20101125
  5. PEGASYS [Suspect]
     Indication: HEPATITIS C
     Dosage: 90 MCG; QW; SC
     Route: 058
     Dates: start: 20101230
  6. GRANULOKIN [Concomitant]

REACTIONS (1)
  - PORTAL VEIN THROMBOSIS [None]
